FAERS Safety Report 23826462 (Version 1)
Quarter: 2024Q2

REPORT INFORMATION
  Report Type: Report from Study
  Country: CA (occurrence: CA)
  Receive Date: 20240507
  Receipt Date: 20240507
  Transmission Date: 20240716
  Serious: Yes (Other)
  Sender: FDA-Public Use
  Company Number: CA-TAKEDA-2018TUS035333

PATIENT
  Age: 43 Year
  Sex: Male

DRUGS (10)
  1. VEDOLIZUMAB [Suspect]
     Active Substance: VEDOLIZUMAB
     Indication: Crohn^s disease
     Dosage: 300 MILLIGRAM
     Route: 042
     Dates: start: 20181030
  2. VEDOLIZUMAB [Suspect]
     Active Substance: VEDOLIZUMAB
     Dosage: 300 MILLIGRAM
     Route: 042
  3. VEDOLIZUMAB [Suspect]
     Active Substance: VEDOLIZUMAB
     Dosage: 300 MILLIGRAM, Q4WEEKS
     Route: 042
     Dates: start: 20190718
  4. VEDOLIZUMAB [Suspect]
     Active Substance: VEDOLIZUMAB
     Dosage: 300 MILLIGRAM, Q4WEEKS
     Route: 042
  5. VEDOLIZUMAB [Suspect]
     Active Substance: VEDOLIZUMAB
     Dosage: 300 MILLIGRAM, Q4WEEKS
     Route: 042
     Dates: end: 20240411
  6. GLUMETSAN [Concomitant]
     Dosage: UNK
  7. LANTUS [Concomitant]
     Active Substance: INSULIN GLARGINE
     Dosage: UNK
  8. PERINDOPRIL [Concomitant]
     Active Substance: PERINDOPRIL
     Indication: Diabetes mellitus
     Dosage: UNK
  9. STELARA [Concomitant]
     Active Substance: USTEKINUMAB
     Dosage: UNK
  10. ENTOCORT [Concomitant]
     Active Substance: BUDESONIDE
     Dosage: UNK

REACTIONS (5)
  - Crohn^s disease [Unknown]
  - Arthropathy [Unknown]
  - Diarrhoea [Unknown]
  - Therapeutic response decreased [Unknown]
  - Off label use [Unknown]

NARRATIVE: CASE EVENT DATE: 20190718
